FAERS Safety Report 10265848 (Version 1)
Quarter: 2014Q2

REPORT INFORMATION
  Report Type: Spontaneous
  Country: DE (occurrence: DE)
  Receive Date: 20140627
  Receipt Date: 20140627
  Transmission Date: 20141212
  Serious: Yes (Congenital Anomaly)
  Sender: FDA-Public Use
  Company Number: DE-GLAXOSMITHKLINE-D0084449A

PATIENT
  Sex: Female
  Weight: 3.3 kg

DRUGS (2)
  1. ZOFRAN [Suspect]
     Indication: VOMITING IN PREGNANCY
     Route: 064
  2. FOLIC ACID [Concomitant]
     Indication: PROPHYLAXIS OF NEURAL TUBE DEFECT
     Route: 064

REACTIONS (3)
  - Mastocytoma [Unknown]
  - Naevus flammeus [Unknown]
  - Foetal exposure during pregnancy [Unknown]
